FAERS Safety Report 16681097 (Version 15)
Quarter: 2021Q2

REPORT INFORMATION
  Report Type: Spontaneous
  Country: CA (occurrence: CA)
  Receive Date: 20190808
  Receipt Date: 20210401
  Transmission Date: 20210716
  Serious: Yes (Hospitalization)
  Sender: FDA-Public Use
  Company Number: CA-CELLTRION INC.-2019CA023484

PATIENT

DRUGS (24)
  1. INFLECTRA [Suspect]
     Active Substance: INFLIXIMAB-DYYB
     Indication: COLITIS ULCERATIVE
     Dosage: 400 MG Q 0, 2, 6 WEEKS, THEN EVERY 8 WEEKS
     Route: 042
     Dates: start: 20190720, end: 20191023
  2. INFLECTRA [Suspect]
     Active Substance: INFLIXIMAB-DYYB
     Dosage: 5 MG/KG, EVERY 6 WEEKS
     Route: 042
     Dates: start: 20210202
  3. INFLECTRA [Suspect]
     Active Substance: INFLIXIMAB-DYYB
     Dosage: 400 MG Q 0, 2, 6 WEEKS, THEN EVERY 8 WEEKS
     Route: 042
     Dates: start: 20191023
  4. FLOVENT [Concomitant]
     Active Substance: FLUTICASONE PROPIONATE
     Dosage: 1 DF, AS NEEDED
     Route: 065
  5. INFLECTRA [Suspect]
     Active Substance: INFLIXIMAB-DYYB
     Dosage: 10 MG/KG Q 0, 2, 6 WEEKS, THEN EVERY 8 WEEKS
     Route: 042
     Dates: start: 20191108, end: 20191127
  6. INFLECTRA [Suspect]
     Active Substance: INFLIXIMAB-DYYB
     Dosage: 10 MG/KG EVERY 6 WEEKS
     Route: 042
     Dates: start: 20200610
  7. INFLECTRA [Suspect]
     Active Substance: INFLIXIMAB-DYYB
     Dosage: 10 MG/KG, EVERY 6 WEEKS
     Route: 042
     Dates: start: 20210217
  8. CALCIUM [Concomitant]
     Active Substance: CALCIUM
     Dosage: 1 DF
     Route: 065
  9. INFLECTRA [Suspect]
     Active Substance: INFLIXIMAB-DYYB
     Dosage: 300 MG, Q 0, 2, 6 WEEKS, THEN EVERY 8 WEEKS
     Route: 042
     Dates: start: 20190803
  10. VITAMIN D NOS [Concomitant]
     Active Substance: VITAMIN D NOS
     Dosage: UNK UNK, WEEKLY
     Route: 065
  11. INFLECTRA [Suspect]
     Active Substance: INFLIXIMAB-DYYB
     Dosage: 10 MG/KG EVERY 6 WEEKS
     Route: 042
     Dates: start: 20191223
  12. INFLECTRA [Suspect]
     Active Substance: INFLIXIMAB-DYYB
     Dosage: 10 MG/KG EVERY 6 WEEKS
     Route: 042
     Dates: start: 20200610
  13. INFLECTRA [Suspect]
     Active Substance: INFLIXIMAB-DYYB
     Dosage: 10 MG/KG EVERY 6 WEEKS
     Route: 042
     Dates: start: 20200902
  14. INFLECTRA [Suspect]
     Active Substance: INFLIXIMAB-DYYB
     Dosage: 10 MG/KG EVERY 6 WEEKS
     Route: 042
     Dates: start: 20201125
  15. INFLECTRA [Suspect]
     Active Substance: INFLIXIMAB-DYYB
     Dosage: 10 MG/KG EVERY 6 WEEKS
     Route: 042
     Dates: start: 20210106
  16. INFLECTRA [Suspect]
     Active Substance: INFLIXIMAB-DYYB
     Dosage: 10 MG/KG EVERY 6 WEEKS
     Route: 042
     Dates: start: 20210106
  17. VALACYCLOVIR HCL [Concomitant]
     Active Substance: VALACYCLOVIR HYDROCHLORIDE
     Dosage: 2 DF, 3X/DAY FOR 7 DAYS
     Route: 048
     Dates: start: 201907
  18. INFLECTRA [Suspect]
     Active Substance: INFLIXIMAB-DYYB
     Dosage: 10 MG/KG EVERY 6 WEEKS
     Route: 042
     Dates: start: 20201125
  19. VITAMIN D NOS [Concomitant]
     Active Substance: VITAMIN D NOS
     Dosage: 1 DF
     Route: 065
  20. SOLU?MEDROL [Concomitant]
     Active Substance: METHYLPREDNISOLONE SODIUM SUCCINATE
     Dosage: 1 DF
     Route: 065
     Dates: start: 2019, end: 2019
  21. INFLECTRA [Suspect]
     Active Substance: INFLIXIMAB-DYYB
     Dosage: 10 MG/KG EVERY 6 WEEKS
     Route: 042
     Dates: start: 20200429
  22. INFLECTRA [Suspect]
     Active Substance: INFLIXIMAB-DYYB
     Dosage: 10 MG/KG EVERY 6 WEEKS
     Route: 042
     Dates: start: 20200722
  23. INFLECTRA [Suspect]
     Active Substance: INFLIXIMAB-DYYB
     Dosage: 10 MG/KG EVERY 6 WEEKS
     Route: 042
     Dates: start: 20201014
  24. VENTOLIN [Concomitant]
     Active Substance: ALBUTEROL SULFATE
     Dosage: 10 DF, AS NEEDED
     Route: 065

REACTIONS (13)
  - Condition aggravated [Recovering/Resolving]
  - Off label use [Unknown]
  - Incorrect dose administered [Unknown]
  - Blood disorder [Not Recovered/Not Resolved]
  - Intentional product use issue [Unknown]
  - Hordeolum [Recovered/Resolved]
  - Weight decreased [Unknown]
  - Off label use [Unknown]
  - Fatigue [Not Recovered/Not Resolved]
  - Abscess [Recovered/Resolved]
  - Blood pressure fluctuation [Unknown]
  - Conjunctivitis [Recovered/Resolved]
  - Discomfort [Unknown]

NARRATIVE: CASE EVENT DATE: 201907
